FAERS Safety Report 23681452 (Version 2)
Quarter: 2024Q2

REPORT INFORMATION
  Report Type: Spontaneous
  Country: US (occurrence: US)
  Receive Date: 20240328
  Receipt Date: 20240515
  Transmission Date: 20240715
  Serious: No
  Sender: FDA-Public Use
  Company Number: US-UNITED THERAPEUTICS-UNT-2024-007981

PATIENT
  Age: 58 Year
  Sex: Male
  Weight: 84.807 kg

DRUGS (14)
  1. REMODULIN [Suspect]
     Active Substance: TREPROSTINIL
     Indication: Pulmonary arterial hypertension
     Dosage: 0.004 ?G/KG (SELF-FILLED WITH 2ML PER CASSETTE; PUMP RATE OF 21MCL PER HOUR), CONTINUING
     Route: 058
     Dates: start: 202403
  2. REMODULIN [Suspect]
     Active Substance: TREPROSTINIL
     Dosage: 0.0065 ?G/KG, (SELF-FILL WITH 2.9ML PER CASSETTE AT THE PUMP RATE OF 34MCL PER HOUR), CONTINUING
     Route: 058
     Dates: start: 202403
  3. REMODULIN [Suspect]
     Active Substance: TREPROSTINIL
     Dosage: UNK, CONTINUING
     Route: 058
     Dates: start: 20240308
  4. TADALAFIL [Concomitant]
     Active Substance: TADALAFIL
     Indication: Product used for unknown indication
     Route: 065
  5. ATORVASTATIN CALCIUM [Concomitant]
     Active Substance: ATORVASTATIN CALCIUM
     Indication: Product used for unknown indication
     Route: 065
  6. SODIUM CHLORIDE [Concomitant]
     Active Substance: SODIUM CHLORIDE
     Indication: Product used for unknown indication
     Route: 065
  7. OPSUMIT [Concomitant]
     Active Substance: MACITENTAN
     Indication: Product used for unknown indication
     Route: 065
  8. ELIQUIS [Concomitant]
     Active Substance: APIXABAN
     Indication: Product used for unknown indication
     Route: 065
  9. SPIRONOLACTONE [Concomitant]
     Active Substance: SPIRONOLACTONE
     Indication: Product used for unknown indication
     Route: 065
  10. BUMETANIDE [Concomitant]
     Active Substance: BUMETANIDE
     Indication: Product used for unknown indication
     Route: 065
  11. OXYGEN [Concomitant]
     Active Substance: OXYGEN
     Indication: Product used for unknown indication
     Route: 065
  12. POTASSIUM CHLORIDE [Concomitant]
     Active Substance: POTASSIUM CHLORIDE
     Indication: Product used for unknown indication
     Route: 065
  13. TAMSULOSIN HYDROCHLORIDE [Concomitant]
     Active Substance: TAMSULOSIN HYDROCHLORIDE
     Indication: Product used for unknown indication
     Route: 065
  14. FISH OIL [Concomitant]
     Active Substance: FISH OIL
     Indication: Product used for unknown indication
     Route: 065

REACTIONS (4)
  - Infusion site pain [Recovered/Resolved]
  - Infusion site erythema [Recovered/Resolved]
  - Flushing [Not Recovered/Not Resolved]
  - Infusion site haemorrhage [Recovered/Resolved]

NARRATIVE: CASE EVENT DATE: 20240301
